FAERS Safety Report 25807633 (Version 1)
Quarter: 2025Q3

REPORT INFORMATION
  Report Type: Spontaneous
  Country: US (occurrence: US)
  Receive Date: 20250916
  Receipt Date: 20250916
  Transmission Date: 20251021
  Serious: Yes (Death, Other)
  Sender: FRESENIUS KABI
  Company Number: US-FreseniusKabi-FK202512600

PATIENT
  Age: 38 Year
  Sex: Male

DRUGS (2)
  1. PROTAMINE [Suspect]
     Active Substance: PROTAMINE
     Indication: Procoagulant therapy
     Route: 042
  2. PROTAMINE [Suspect]
     Active Substance: PROTAMINE

REACTIONS (3)
  - Anaphylactic reaction [Fatal]
  - Pulmonary hypertension [Fatal]
  - Cardiac arrest [Fatal]
